FAERS Safety Report 9011301 (Version 1)
Quarter: 2013Q1

REPORT INFORMATION
  Report Type: Spontaneous
  Country: US (occurrence: US)
  Receive Date: 20130109
  Receipt Date: 20130109
  Transmission Date: 20140127
  Serious: No
  Sender: FDA-Public Use
  Company Number: US-TEVA-378535USA

PATIENT
  Age: 57 Year
  Sex: Male
  Weight: 102.15 kg

DRUGS (1)
  1. PROAIR HFA [Suspect]
     Indication: UPPER RESPIRATORY TRACT INFECTION
     Dosage: 360 MICROGRAM DAILY;
     Route: 055
     Dates: start: 20121226

REACTIONS (3)
  - Dyspnoea [Not Recovered/Not Resolved]
  - Lung disorder [Not Recovered/Not Resolved]
  - Cough [Not Recovered/Not Resolved]
